FAERS Safety Report 8515535 (Version 2)
Quarter: 2013Q4

REPORT INFORMATION
  Report Type: Spontaneous
  Country: FR (occurrence: FR)
  Receive Date: 20120417
  Receipt Date: 20131217
  Transmission Date: 20140711
  Serious: Yes (Hospitalization)
  Sender: FDA-Public Use
  Company Number: FR-AMGEN-FRASP2012022382

PATIENT
  Age: 60 Year
  Sex: Male

DRUGS (11)
  1. NEULASTA [Suspect]
     Indication: PRODUCT USED FOR UNKNOWN INDICATION
     Dosage: 6 MG, UNK
     Route: 058
     Dates: start: 20120206
  2. CISPLATINE [Concomitant]
     Dosage: 175 MG PER COURSE, UNK
     Route: 042
     Dates: start: 20120203, end: 20120204
  3. CISPLATINE [Concomitant]
     Dosage: 175 MG PER COURSE, UNK
     Route: 042
     Dates: start: 20120229, end: 20120229
  4. ARACYTINE [Concomitant]
     Dosage: 3500 MG PER COURSE, UNK
     Route: 042
     Dates: start: 20120204, end: 20120205
  5. ARACYTINE [Concomitant]
     Dosage: 3500 MG PER COURSE, UNK
     Route: 042
     Dates: start: 20120229, end: 20120229
  6. DEXAMETHASONE [Concomitant]
     Dosage: 40 MG, PER COURSE ,UNK
     Route: 042
     Dates: start: 20120203, end: 20120206
  7. DEXAMETHASONE [Concomitant]
     Dosage: 40 MG, PER COURSE ,UNK
     Route: 042
     Dates: start: 20130203
  8. ZOPHREN                            /00955301/ [Concomitant]
     Dosage: 8 MG PER COURSE, UNK
     Route: 042
     Dates: start: 20120203, end: 20120204
  9. ZOPHREN                            /00955301/ [Concomitant]
     Dosage: 8 MG PER COURSE, UNK
     Route: 042
     Dates: start: 20130203
  10. EMEND                              /01627301/ [Concomitant]
     Dosage: 125 MG, UNK
     Route: 042
     Dates: start: 20120203, end: 20120204
  11. EMEND                              /01627301/ [Concomitant]
     Dosage: 40 MG PER COURSE, UNK
     Route: 042
     Dates: start: 20130203

REACTIONS (1)
  - Hypersensitivity vasculitis [Recovered/Resolved]
